FAERS Safety Report 5903560-4 (Version None)
Quarter: 2008Q3

REPORT INFORMATION
  Report Type: 
  Country: None (occurrence: None)
  Receive Date: 20080919
  Receipt Date: 20080610
  Transmission Date: 20090109
  Serious: No
  Sender: FDA-Public Use
  Company Number: US-WYE-H04449808

PATIENT
  Age: 48 Year
  Weight: 108.96 kg

DRUGS (5)
  1. PRISTIQ [Suspect]
     Indication: DEPRESSION
     Dosage: 50 MG 1X PER 1 DAY, ORAL
     Route: 048
     Dates: start: 20080501
  2. ALPRAZOLAM [Concomitant]
  3. WELLBUTRIN XL [Concomitant]
  4. LIPITOR [Concomitant]
  5. PREVACID [Concomitant]

REACTIONS (1)
  - OEDEMA PERIPHERAL [None]
